FAERS Safety Report 5571190-2 (Version None)
Quarter: 2007Q4

REPORT INFORMATION
  Report Type: 
  Country: None (occurrence: None)
  Receive Date: 20071221
  Receipt Date: 20070111
  Transmission Date: 20080405
  Serious: No
  Sender: FDA-Public Use
  Company Number: A0635360A

PATIENT
  Age: 81 Year
  Sex: Female

DRUGS (11)
  1. FLONASE [Suspect]
     Dosage: 2SPR PER DAY
     Route: 045
     Dates: start: 20070104
  2. ZETIA [Concomitant]
  3. FUROSEMIDE [Concomitant]
  4. DIGITEK [Concomitant]
  5. WARFARIN SODIUM [Concomitant]
  6. LISINOPRIL [Concomitant]
  7. CARDIAC DRUG [Concomitant]
  8. CALCIUM SUPPLEMENT [Concomitant]
  9. CENTRUM SILVER [Concomitant]
  10. CHONDROITIN/GLUCOSAMINE [Concomitant]
  11. ADVAIR DISKUS 100/50 [Concomitant]

REACTIONS (3)
  - INITIAL INSOMNIA [None]
  - INSOMNIA [None]
  - UNDERDOSE [None]
